FAERS Safety Report 4762750-7 (Version None)
Quarter: 2005Q3

REPORT INFORMATION
  Report Type: 
  Country: None (occurrence: None)
  Receive Date: 20050907
  Receipt Date: 20020429
  Transmission Date: 20060218
  Serious: Yes (Hospitalization)
  Sender: FDA-Public Use
  Company Number: US-MERCK-0204USA03260

PATIENT
  Age: 52 Year
  Sex: Male

DRUGS (1)
  1. VIOXX [Suspect]
     Route: 048
     Dates: start: 19990101, end: 20020326

REACTIONS (3)
  - HAEMORRHAGE [None]
  - MYOCARDIAL INFARCTION [None]
  - PAIN [None]
